FAERS Safety Report 13268897 (Version 1)
Quarter: 2017Q1

REPORT INFORMATION
  Report Type: Spontaneous
  Country: FR (occurrence: FR)
  Receive Date: 20170224
  Receipt Date: 20170224
  Transmission Date: 20170428
  Serious: Yes (Hospitalization)
  Sender: FDA-Public Use
  Company Number: FR-ASTRAZENECA-2017SE19131

PATIENT
  Age: 22463 Day
  Sex: Male

DRUGS (2)
  1. ORBENINE [Suspect]
     Active Substance: CLOXACILLIN SODIUM
     Route: 048
     Dates: start: 2014, end: 2014
  2. INEXIUM [Suspect]
     Active Substance: ESOMEPRAZOLE
     Route: 048
     Dates: start: 2014, end: 2014

REACTIONS (7)
  - Anaemia [Unknown]
  - Staphylococcal bacteraemia [Unknown]
  - Tubulointerstitial nephritis [Recovered/Resolved with Sequelae]
  - Nephropathy [Unknown]
  - Chronic kidney disease [Unknown]
  - Oesophagitis ulcerative [Unknown]
  - Asthenia [Unknown]

NARRATIVE: CASE EVENT DATE: 201411
